FAERS Safety Report 8024911-3 (Version None)
Quarter: 2012Q1

REPORT INFORMATION
  Report Type: 
  Country: None (occurrence: None)
  Receive Date: 20120105
  Receipt Date: 20111227
  Transmission Date: 20120608
  Serious: Yes (Death)
  Sender: FDA-Public Use
  Company Number: US-JNJFOC-20111212455

PATIENT
  Age: 47 Year
  Sex: Female

DRUGS (6)
  1. SILDENAFIL [Suspect]
     Indication: SUICIDE ATTEMPT
     Route: 048
  2. QUINAPRIL [Suspect]
     Indication: SUICIDE ATTEMPT
     Route: 048
  3. ETHANOL [Suspect]
     Indication: SUICIDE ATTEMPT
     Route: 048
  4. ACETAMINOPHEN [Suspect]
     Indication: SUICIDE ATTEMPT
     Route: 048
  5. ACETAMINOPHEN [Suspect]
     Route: 048
  6. NADOLOL [Suspect]
     Indication: SUICIDE ATTEMPT
     Route: 048

REACTIONS (1)
  - TOXICITY TO VARIOUS AGENTS [None]
